FAERS Safety Report 20701161 (Version 1)
Quarter: 2022Q2

REPORT INFORMATION
  Report Type: Spontaneous
  Country: US (occurrence: US)
  Receive Date: 20220412
  Receipt Date: 20220412
  Transmission Date: 20220721
  Serious: No
  Sender: FDA-Public Use
  Company Number: US-SA-SAC20220411000209

PATIENT
  Age: 54 Year
  Sex: Female

DRUGS (15)
  1. AUBAGIO [Suspect]
     Active Substance: TERIFLUNOMIDE
     Indication: Multiple sclerosis
     Dosage: 14 MG, QD
     Route: 048
     Dates: start: 20220110
  2. HYDROCODONE [Concomitant]
     Active Substance: HYDROCODONE
     Dosage: UNK
  3. HOMATROPINE [Concomitant]
     Active Substance: HOMATROPINE HYDROBROMIDE
     Dosage: UNK
  4. AMOXICILLIN [Concomitant]
     Active Substance: AMOXICILLIN
     Dosage: UNK
  5. CLAVULANATE POTASSIUM [Concomitant]
     Active Substance: CLAVULANATE POTASSIUM
     Dosage: UNK
  6. BENZONATATE [Concomitant]
     Active Substance: BENZONATATE
     Dosage: UNK
  7. METRONIDAZOLE [Concomitant]
     Active Substance: METRONIDAZOLE
     Dosage: UNK
  8. PROMETHAZINE [Concomitant]
     Active Substance: PROMETHAZINE HYDROCHLORIDE
     Dosage: UNK
  9. TIZANIDINE [Concomitant]
     Active Substance: TIZANIDINE
     Dosage: UNK
  10. BACLOFEN [Concomitant]
     Active Substance: BACLOFEN
     Indication: Multiple sclerosis
     Dosage: UNK
  11. GABAPENTIN [Concomitant]
     Active Substance: GABAPENTIN
     Dosage: UNK
  12. ZOLPIDEM TARTRATE [Concomitant]
     Active Substance: ZOLPIDEM TARTRATE
     Dosage: UNK
  13. MECLIZINE HYDROCHLORIDE [Concomitant]
     Active Substance: MECLIZINE HYDROCHLORIDE
     Dosage: UNK
  14. ONDANSETRON [Concomitant]
     Active Substance: ONDANSETRON
     Dosage: UNK
  15. MODAFINIL [Concomitant]
     Active Substance: MODAFINIL
     Dosage: UNK

REACTIONS (1)
  - Product dose omission issue [Unknown]
